FAERS Safety Report 19230183 (Version 7)
Quarter: 2021Q4

REPORT INFORMATION
  Report Type: Report from Study
  Country: US (occurrence: US)
  Receive Date: 20210507
  Receipt Date: 20211023
  Transmission Date: 20220303
  Serious: Yes (Other)
  Sender: FDA-Public Use
  Company Number: NVSC2021US096887

PATIENT
  Age: 79 Year
  Sex: Male

DRUGS (16)
  1. ENTRESTO [Suspect]
     Active Substance: SACUBITRIL\VALSARTAN
     Indication: Cardiac failure congestive
     Dosage: 1 DF, BID
     Route: 065
     Dates: start: 2016, end: 20210524
  2. HYDRALAZINE [Suspect]
     Active Substance: HYDRALAZINE HYDROCHLORIDE
     Indication: Chronic kidney disease
     Dosage: 25 MG
     Route: 048
     Dates: start: 2017, end: 20210414
  3. SPIRONOLACTONE [Suspect]
     Active Substance: SPIRONOLACTONE
     Indication: Product used for unknown indication
     Dosage: UNK
     Route: 065
  4. ZYLOPRIM [Concomitant]
     Active Substance: ALLOPURINOL
     Indication: Product used for unknown indication
     Dosage: 1 DF, QD
     Route: 048
  5. ASPIRIN [Concomitant]
     Active Substance: ASPIRIN
     Indication: Coronary artery disease
     Dosage: 1 DF, QD
     Route: 048
  6. ALPHAGAN P [Concomitant]
     Active Substance: BRIMONIDINE TARTRATE
     Indication: Product used for unknown indication
     Dosage: UNK, BID (1 DROP INTO BOTH EYES TWICE DAY)
     Route: 065
  7. COREG [Concomitant]
     Active Substance: CARVEDILOL
     Indication: Coronary artery disease
     Dosage: 1 DF, BID (WITH MEALS)
     Route: 048
  8. REPATHA [Concomitant]
     Active Substance: EVOLOCUMAB
     Indication: Hyperlipidaemia
     Dosage: 1 ML (EVERY 14 DAYS)
     Route: 058
  9. PLAVIX [Concomitant]
     Active Substance: CLOPIDOGREL BISULFATE
     Indication: Coronary artery disease
     Dosage: 300 MG (1ST DAY ONLY THEN CONTINUE WITH 75MG DAILY)
     Route: 048
  10. PLAVIX [Concomitant]
     Active Substance: CLOPIDOGREL BISULFATE
     Dosage: 1 DF, QD
     Route: 048
  11. LASIX [Concomitant]
     Active Substance: FUROSEMIDE
     Indication: Product used for unknown indication
     Dosage: 1 DF, QD
     Route: 048
  12. IMDUR [Concomitant]
     Active Substance: ISOSORBIDE MONONITRATE
     Indication: Coronary artery disease
     Dosage: 2 DF, QD
     Route: 048
  13. IMDUR [Concomitant]
     Active Substance: ISOSORBIDE MONONITRATE
     Indication: Chronic kidney disease
  14. COZAAR [Concomitant]
     Active Substance: LOSARTAN POTASSIUM
     Indication: Product used for unknown indication
     Dosage: 25 MG, QD
     Route: 048
  15. NITROSTAT [Concomitant]
     Active Substance: NITROGLYCERIN
     Indication: Chest pain
     Dosage: 1 DF (1 TABLET UNDER THE TONGUE EVERY 5 MINUTES FO R30 DOSES)
     Route: 060
  16. PREDNISONE [Concomitant]
     Active Substance: PREDNISONE
     Indication: Gout
     Route: 065

REACTIONS (23)
  - Loss of consciousness [Unknown]
  - Cerebrovascular accident [Recovered/Resolved with Sequelae]
  - Myocardial infarction [Recovered/Resolved]
  - Acute myocardial infarction [Unknown]
  - Carotid artery stenosis [Recovered/Resolved with Sequelae]
  - Amaurosis fugax [Recovered/Resolved with Sequelae]
  - Arterial disorder [Recovered/Resolved with Sequelae]
  - Eye disorder [Recovered/Resolved with Sequelae]
  - Weight increased [Unknown]
  - Fatigue [Not Recovered/Not Resolved]
  - Hypotension [Unknown]
  - Malaise [Unknown]
  - Hypovolaemia [Unknown]
  - Blood chloride increased [Unknown]
  - Anion gap decreased [Unknown]
  - Blood glucose increased [Unknown]
  - Blood urea increased [Unknown]
  - Blood creatinine increased [Unknown]
  - Glomerular filtration rate decreased [Unknown]
  - Hyperkalaemia [Unknown]
  - Prescribed underdose [Unknown]
  - Wrong technique in product usage process [Unknown]
  - Drug ineffective [Unknown]

NARRATIVE: CASE EVENT DATE: 20170101
